FAERS Safety Report 12564669 (Version 4)
Quarter: 2016Q3

REPORT INFORMATION
  Report Type: Spontaneous
  Country: US (occurrence: US)
  Receive Date: 20160718
  Receipt Date: 20160929
  Transmission Date: 20161109
  Serious: Yes (Death, Hospitalization)
  Sender: FDA-Public Use
  Company Number: US-CELGENEUS-USA-2016073881

PATIENT
  Age: 95 Year
  Sex: Male

DRUGS (2)
  1. ACYCLOVIR. [Concomitant]
     Active Substance: ACYCLOVIR
     Indication: PRODUCT USED FOR UNKNOWN INDICATION
     Dosage: 1
     Route: 048
     Dates: start: 20160518
  2. REVLIMID [Suspect]
     Active Substance: LENALIDOMIDE
     Indication: PLASMA CELL MYELOMA
     Route: 048
     Dates: start: 20160602, end: 20160623

REACTIONS (2)
  - Plasma cell myeloma [Fatal]
  - Renal failure [Fatal]

NARRATIVE: CASE EVENT DATE: 20160626
